FAERS Safety Report 8117735-X (Version None)
Quarter: 2012Q1

REPORT INFORMATION
  Report Type: 
  Country: None (occurrence: None)
  Receive Date: 20120203
  Receipt Date: 20120203
  Transmission Date: 20120608
  Serious: No
  Sender: FDA-Public Use
  Company Number: None

PATIENT
  Sex: Female
  Weight: 81.6475 kg

DRUGS (1)
  1. GAMUNEX [Suspect]
     Indication: NEUROPATHY PERIPHERAL
     Dosage: 50 GRAMS Q2W IV
     Route: 042
     Dates: start: 20110901, end: 20120201

REACTIONS (6)
  - DIZZINESS [None]
  - NAUSEA [None]
  - HEADACHE [None]
  - INFUSION RELATED REACTION [None]
  - CHEST PAIN [None]
  - COUGH [None]
